FAERS Safety Report 8161140-7 (Version None)
Quarter: 2012Q1

REPORT INFORMATION
  Report Type: 
  Country: None (occurrence: None)
  Receive Date: 20120224
  Receipt Date: 20120221
  Transmission Date: 20120608
  Serious: No
  Sender: FDA-Public Use
  Company Number: US-PFIZER INC-2012045593

PATIENT
  Sex: Female

DRUGS (1)
  1. SUTENT [Suspect]
     Indication: METASTATIC RENAL CELL CARCINOMA
     Dosage: 50 MG, DAILY 4WEEKS ON AND 2 OFF
     Dates: start: 20120131

REACTIONS (6)
  - CONSTIPATION [None]
  - ORAL PAIN [None]
  - PAIN IN EXTREMITY [None]
  - FALL [None]
  - ARTHRALGIA [None]
  - DYSGEUSIA [None]
